FAERS Safety Report 16816612 (Version 1)
Quarter: 2019Q3

REPORT INFORMATION
  Report Type: Spontaneous
  Country: IE (occurrence: IE)
  Receive Date: 20190917
  Receipt Date: 20190917
  Transmission Date: 20191005
  Serious: Yes (Hospitalization)
  Sender: FDA-Public Use
  Company Number: IE-JNJFOC-20190910844

PATIENT
  Age: 9 Decade
  Sex: Female

DRUGS (11)
  1. CALCICHEW D3 FORTE [Concomitant]
     Active Substance: CALCIUM\CHOLECALCIFEROL
     Dosage: UNK UNK, BID
  2. ATORVASTATIN [Concomitant]
     Active Substance: ATORVASTATIN
     Dosage: 20 MG
  3. LANSOPRAZOLE. [Concomitant]
     Active Substance: LANSOPRAZOLE
     Dosage: 30 MG, QD
  4. RIVAROXABAN [Suspect]
     Active Substance: RIVAROXABAN
     Route: 048
  5. VALOID [Concomitant]
     Active Substance: CYCLIZINE HYDROCHLORIDE
     Dosage: 50 MG, TID
  6. RIVAROXABAN [Suspect]
     Active Substance: RIVAROXABAN
     Indication: ATRIAL FIBRILLATION
     Dosage: 20 MG
     Route: 048
     Dates: start: 201906, end: 201908
  7. MEROKEN NEW [Concomitant]
     Dosage: UNK
  8. PRO-CAL-D [Concomitant]
     Active Substance: CALCIUM CARBONATE\CHOLECALCIFEROL
     Dosage: UNK
  9. LEVOTHYROXINE. [Concomitant]
     Active Substance: LEVOTHYROXINE
     Dosage: 25 MG, QD
  10. METOPROLOL. [Concomitant]
     Active Substance: METOPROLOL
     Dosage: 20 MG, TID
  11. TIMOPTOL [Concomitant]
     Active Substance: TIMOLOL
     Dosage: 0.25 %

REACTIONS (3)
  - Hospitalisation [Unknown]
  - Incorrect product administration duration [Unknown]
  - Dehydration [Unknown]

NARRATIVE: CASE EVENT DATE: 2019
